FAERS Safety Report 6583606-3 (Version None)
Quarter: 2010Q1

REPORT INFORMATION
  Report Type: 
  Country: None (occurrence: None)
  Receive Date: 20100216
  Receipt Date: 20100211
  Transmission Date: 20100710
  Serious: Yes (Hospitalization)
  Sender: FDA-Public Use
  Company Number: IT-PFIZER INC-2010019308

PATIENT
  Age: 69 Year
  Sex: Female

DRUGS (2)
  1. CELEBREX [Suspect]
     Dosage: 200 MG DAILY
     Route: 048
     Dates: start: 20091029, end: 20091029
  2. TICLOPIDINE HYDROCHLORIDE [Concomitant]
     Dosage: 250 MG, UNK
     Route: 048

REACTIONS (2)
  - CONFUSIONAL STATE [None]
  - VOMITING [None]
